FAERS Safety Report 8912059 (Version 2)
Quarter: 2013Q1

REPORT INFORMATION
  Report Type: Spontaneous
  Country: US (occurrence: None)
  Receive Date: 20121113
  Receipt Date: 20130212
  Transmission Date: 20140127
  Serious: Yes (Death, Hospitalization)
  Sender: FDA-Public Use
  Company Number: US-JNJFOC-20121103994

PATIENT
  Age: 69 Year
  Sex: Female
  Weight: 124 kg

DRUGS (1)
  1. DECITABINE [Suspect]
     Indication: ACUTE MYELOID LEUKAEMIA
     Route: 042
     Dates: start: 20121005

REACTIONS (12)
  - Respiratory failure [None]
  - Sepsis [None]
  - Deep vein thrombosis [None]
  - Thrombocytopenia [None]
  - Atrial fibrillation [None]
  - Pulmonary hypertension [None]
  - Sleep apnoea syndrome [None]
  - Peripheral ischaemia [None]
  - Compartment syndrome [None]
  - General physical health deterioration [None]
  - Hypothermia [None]
  - Cardiac arrest [None]
